FAERS Safety Report 7214605-6 (Version None)
Quarter: 2011Q1

REPORT INFORMATION
  Report Type: 
  Country: None (occurrence: None)
  Receive Date: 20110107
  Receipt Date: 20101228
  Transmission Date: 20110831
  Serious: Yes (Hospitalization, Other)
  Sender: FDA-Public Use
  Company Number: FR-JNJFOC-20110100414

PATIENT
  Age: 10 Year
  Sex: Male

DRUGS (6)
  1. CORTICOSTEROIDS [Concomitant]
     Indication: CROHN'S DISEASE
  2. REMICADE [Suspect]
     Dosage: 15TH INFUSION
     Route: 042
  3. IMUREL [Concomitant]
     Indication: CROHN'S DISEASE
  4. REMICADE [Suspect]
     Indication: CROHN'S DISEASE
     Route: 042
  5. REMICADE [Suspect]
     Route: 042
  6. REMICADE [Suspect]
     Route: 042

REACTIONS (5)
  - CROHN'S DISEASE [None]
  - EYE MOVEMENT DISORDER [None]
  - HYPOTENSION [None]
  - INFUSION RELATED REACTION [None]
  - AGITATION [None]
